FAERS Safety Report 7776625-2 (Version None)
Quarter: 2011Q3

REPORT INFORMATION
  Report Type: 
  Country: None (occurrence: None)
  Receive Date: 20110922
  Receipt Date: 20110922
  Transmission Date: 20111222
  Serious: Yes (Hospitalization)
  Sender: FDA-Public Use
  Company Number: None

PATIENT
  Sex: Male
  Weight: 86 kg

DRUGS (3)
  1. IRINOTECAN HCL [Suspect]
     Dosage: 500 MG
  2. ELOXATIN [Suspect]
     Dosage: 276 MG
  3. BEVACIZUMAB (RHUMAB VEGF) [Suspect]
     Dosage: 430 MG

REACTIONS (5)
  - VOMITING [None]
  - COLONIC OBSTRUCTION [None]
  - ABDOMINAL PAIN [None]
  - NAUSEA [None]
  - CONSTIPATION [None]
